FAERS Safety Report 18386438 (Version 3)
Quarter: 2020Q4

REPORT INFORMATION
  Report Type: Spontaneous
  Country: BR (occurrence: BR)
  Receive Date: 20201015
  Receipt Date: 20201105
  Transmission Date: 20210114
  Serious: Yes (Other)
  Sender: FDA-Public Use
  Company Number: BR-GLAXOSMITHKLINE-BR2020AMR197030

PATIENT
  Sex: Female
  Weight: 75 kg

DRUGS (2)
  1. AEROLIN [Suspect]
     Active Substance: ALBUTEROL
     Indication: NASAL SEPTUM DEVIATION
     Dosage: 2 PUFF(S), QID
  2. NEOSORO [Suspect]
     Active Substance: NAPHAZOLINE HYDROCHLORIDE
     Indication: PRODUCT USED FOR UNKNOWN INDICATION
     Dosage: UNK

REACTIONS (5)
  - Ill-defined disorder [Unknown]
  - Product use in unapproved indication [Unknown]
  - Product complaint [Unknown]
  - Drug dependence [Unknown]
  - Wrong technique in product usage process [Unknown]
